FAERS Safety Report 25785021 (Version 1)
Quarter: 2025Q3

REPORT INFORMATION
  Report Type: Spontaneous
  Country: US (occurrence: US)
  Receive Date: 20250910
  Receipt Date: 20250910
  Transmission Date: 20251021
  Serious: No
  Sender: TEVA
  Company Number: US-TEVA-VS-3366713

PATIENT
  Age: 38 Year
  Sex: Female

DRUGS (5)
  1. PROVIGIL [Suspect]
     Active Substance: MODAFINIL
     Indication: Product used for unknown indication
     Route: 065
  2. IBUPROFEN [Concomitant]
     Active Substance: IBUPROFEN
     Indication: Product used for unknown indication
  3. VITAMIN B12 [Concomitant]
     Active Substance: CYANOCOBALAMIN
     Indication: Product used for unknown indication
  4. VITAMIN D2 [Concomitant]
     Active Substance: ERGOCALCIFEROL
     Indication: Product used for unknown indication
  5. TYSABRI [Concomitant]
     Active Substance: NATALIZUMAB
     Indication: Product used for unknown indication

REACTIONS (7)
  - Nausea [Unknown]
  - Depressed mood [Unknown]
  - Initial insomnia [Unknown]
  - Brain fog [Unknown]
  - Fatigue [Not Recovered/Not Resolved]
  - Headache [Unknown]
  - Treatment noncompliance [Unknown]
